FAERS Safety Report 19036621 (Version 1)
Quarter: 2021Q1

REPORT INFORMATION
  Report Type: Spontaneous
  Country: US (occurrence: US)
  Receive Date: 20210319
  Receipt Date: 20210319
  Transmission Date: 20210420
  Serious: No
  Sender: FDA-Public Use
  Company Number: None

PATIENT
  Age: 54 Year
  Sex: Male
  Weight: 103 kg

DRUGS (1)
  1. LASMIDITAN (LASMIDITAN 100MG TAB) [Suspect]
     Active Substance: LASMIDITAN
     Indication: MIGRAINE
     Dosage: ?          OTHER FREQUENCY:UD;?
     Route: 048
     Dates: start: 20200910, end: 20210314

REACTIONS (3)
  - Dizziness [None]
  - Drug ineffective [None]
  - Sedation [None]

NARRATIVE: CASE EVENT DATE: 20210315
